FAERS Safety Report 4880927-7 (Version None)
Quarter: 2005Q4

REPORT INFORMATION
  Report Type: 
  Country: None (occurrence: None)
  Receive Date: 20051223
  Receipt Date: 20051026
  Transmission Date: 20060501
  Serious: No
  Sender: FDA-Public Use
  Company Number: 05P-163-0315334-00

PATIENT
  Age: 87 Year
  Sex: Female

DRUGS (8)
  1. HUMIRA [Suspect]
     Indication: RHEUMATOID ARTHRITIS
     Dosage: 40 MG, 1 IN 2 WK , SUBCUTANEOUS
     Route: 058
     Dates: start: 20050401
  2. METHOTREXATE [Concomitant]
  3. ATORVASTATIN CALCIUM [Concomitant]
  4. RALOXIFENE HYDROCHLORIDE [Concomitant]
  5. ESOMEPRAZOLE [Concomitant]
  6. METOPROLOL [Concomitant]
  7. VITAMINS [Concomitant]
  8. FOLIC ACID [Concomitant]

REACTIONS (3)
  - HEADACHE [None]
  - INJECTION SITE RASH [None]
  - NIGHT SWEATS [None]
